FAERS Safety Report 10219082 (Version 5)
Quarter: 2014Q4

REPORT INFORMATION
  Report Type: Report from Study
  Country: ES (occurrence: ES)
  Receive Date: 20140605
  Receipt Date: 20141015
  Transmission Date: 20150528
  Serious: Yes (Other)
  Sender: FDA-Public Use
  Company Number: ES-B.I. PHARMACEUTICALS,INC./RIDGEFIELD-2012-ES-00472ES

PATIENT
  Age: 40 Year
  Sex: Male
  Weight: 65 kg

DRUGS (8)
  1. BIBW 2992 [Suspect]
     Active Substance: AFATINIB
     Route: 048
     Dates: start: 20121126
  2. MYCOSTATIN [Concomitant]
     Active Substance: NYSTATIN
     Indication: PRODUCT USED FOR UNKNOWN INDICATION
     Route: 048
     Dates: start: 20121122
  3. SIROLIMUS. [Suspect]
     Active Substance: SIROLIMUS
     Route: 048
     Dates: start: 20121126
  4. ORABASE [Concomitant]
     Active Substance: CARBOXYMETHYLCELLULOSE SODIUM\GELATIN\PECTIN
     Indication: PRODUCT USED FOR UNKNOWN INDICATION
     Route: 048
     Dates: start: 20121122
  5. LOPERAMIDE [Concomitant]
     Active Substance: LOPERAMIDE
     Indication: PRODUCT USED FOR UNKNOWN INDICATION
     Dosage: 4 MG
     Route: 048
     Dates: start: 20121116, end: 20121126
  6. BATMEN [Concomitant]
     Indication: PRODUCT USED FOR UNKNOWN INDICATION
     Route: 061
     Dates: start: 20121122
  7. SIROLIMUS. [Suspect]
     Active Substance: SIROLIMUS
     Indication: NON-SMALL CELL LUNG CANCER
     Dosage: 1 MG
     Route: 048
     Dates: start: 20121101, end: 20121122
  8. BIBW 2992 [Suspect]
     Active Substance: AFATINIB
     Indication: NON-SMALL CELL LUNG CANCER
     Dosage: 40 MG
     Route: 048
     Dates: start: 20121109, end: 20121122

REACTIONS (1)
  - Blood creatine phosphokinase increased [Recovered/Resolved]

NARRATIVE: CASE EVENT DATE: 20121122
